FAERS Safety Report 16975717 (Version 1)
Quarter: 2019Q4

REPORT INFORMATION
  Report Type: Spontaneous
  Country: ES (occurrence: ES)
  Receive Date: 20191030
  Receipt Date: 20191030
  Transmission Date: 20200122
  Serious: Yes (Other)
  Sender: FDA-Public Use
  Company Number: ES-SA-2019SA298601

PATIENT
  Age: 33 Year
  Sex: Female

DRUGS (1)
  1. ALEMTUZUMAB [Suspect]
     Active Substance: ALEMTUZUMAB
     Dosage: UNK
     Route: 041
     Dates: start: 20180306

REACTIONS (7)
  - Multiple sclerosis relapse [Unknown]
  - Hypoaesthesia [Unknown]
  - Vision blurred [Unknown]
  - Hemiparesis [Unknown]
  - Expanded disability status scale score increased [Unknown]
  - Sensitive skin [Unknown]
  - Fatigue [Unknown]

NARRATIVE: CASE EVENT DATE: 20190117
